FAERS Safety Report 9378538 (Version 3)
Quarter: 2013Q4

REPORT INFORMATION
  Report Type: Report from Study
  Country: JP (occurrence: JP)
  Receive Date: 20130702
  Receipt Date: 20131227
  Transmission Date: 20140711
  Serious: Yes (Hospitalization, Other)
  Sender: FDA-Public Use
  Company Number: JP-009507513-1306JPN014327

PATIENT
  Age: 29 Year
  Sex: Male

DRUGS (5)
  1. GLACTIV [Suspect]
     Indication: TYPE 2 DIABETES MELLITUS
     Dosage: 50 MG, QD
     Route: 048
     Dates: start: 20120606, end: 20120929
  2. GLACTIV [Suspect]
     Dosage: 50 MG, QD
     Route: 048
     Dates: start: 20121223
  3. LANTUS [Concomitant]
  4. MEDET [Concomitant]
     Dosage: UNK
     Dates: end: 20120606
  5. HUMALOG [Concomitant]
     Dosage: UNK
     Dates: end: 20120606

REACTIONS (3)
  - Fracture [Recovered/Resolved]
  - Blood glucose increased [Unknown]
  - Glycosylated haemoglobin increased [Unknown]
